FAERS Safety Report 12222486 (Version 1)
Quarter: 2016Q1

REPORT INFORMATION
  Report Type: Spontaneous
  Country: GB (occurrence: GB)
  Receive Date: 20160330
  Receipt Date: 20160330
  Transmission Date: 20160526
  Serious: Yes (Hospitalization)
  Sender: FDA-Public Use
  Company Number: GB-JNJFOC-20160324956

PATIENT
  Age: 45 Year
  Sex: Female

DRUGS (3)
  1. NORETHISTERONE [Suspect]
     Active Substance: NORETHINDRONE
     Indication: VAGINAL HAEMORRHAGE
     Route: 048
     Dates: start: 20160301, end: 20160312
  2. CANDESARTAN [Concomitant]
     Active Substance: CANDESARTAN
     Route: 065
  3. TRANEXAMIC ACID. [Concomitant]
     Active Substance: TRANEXAMIC ACID
     Indication: VAGINAL HAEMORRHAGE
     Route: 065

REACTIONS (6)
  - Psychomotor hyperactivity [Recovering/Resolving]
  - Off label use [Unknown]
  - Anxiety [Recovering/Resolving]
  - Mania [Recovering/Resolving]
  - Agitation [Recovering/Resolving]
  - Product use issue [Unknown]

NARRATIVE: CASE EVENT DATE: 201603
